FAERS Safety Report 5183855-5 (Version None)
Quarter: 2006Q4

REPORT INFORMATION
  Report Type: 
  Country: None (occurrence: None)
  Receive Date: 20061220
  Receipt Date: 20061214
  Transmission Date: 20070319
  Serious: Yes (Disabling)
  Sender: FDA-Public Use
  Company Number: DE-GLAXOSMITHKLINE-D0051782A

PATIENT
  Age: 47 Year
  Sex: Male

DRUGS (1)
  1. AVANDAMET [Suspect]
     Indication: DIABETES MELLITUS NON-INSULIN-DEPENDENT
     Dosage: 1002MG TWICE PER DAY
     Route: 065
     Dates: start: 20060503, end: 20061218

REACTIONS (1)
  - ERECTILE DYSFUNCTION [None]
